FAERS Safety Report 5858738-5 (Version None)
Quarter: 2008Q3

REPORT INFORMATION
  Report Type: 
  Country: None (occurrence: None)
  Receive Date: 20080826
  Receipt Date: 20080818
  Transmission Date: 20090109
  Serious: Yes (Other)
  Sender: FDA-Public Use
  Company Number: DE-ABBOTT-08P-062-0469473-00

PATIENT
  Age: 3 Year
  Sex: Female

DRUGS (2)
  1. VALPROIC ACID [Suspect]
     Indication: PARTIAL SEIZURES
  2. OXCARBAZEPINE [Concomitant]
     Indication: PARTIAL SEIZURES

REACTIONS (9)
  - CONVULSION [None]
  - DEPRESSED LEVEL OF CONSCIOUSNESS [None]
  - ELECTROENCEPHALOGRAM ABNORMAL [None]
  - ENCEPHALOPATHY [None]
  - FATIGUE [None]
  - LIVER DISORDER [None]
  - PLATELET DISORDER [None]
  - TRANSAMINASES INCREASED [None]
  - VOMITING [None]
